FAERS Safety Report 10673608 (Version 1)
Quarter: 2014Q4

REPORT INFORMATION
  Report Type: Spontaneous
  Country: FR (occurrence: FR)
  Receive Date: 20141224
  Receipt Date: 20141224
  Transmission Date: 20150529
  Serious: Yes (Hospitalization)
  Sender: FDA-Public Use
  Company Number: FR-CIPLA LTD.-2014FR02903

PATIENT

DRUGS (5)
  1. FLUINDIONE [Concomitant]
     Active Substance: FLUINDIONE
  2. AMIODARONE [Suspect]
     Active Substance: AMIODARONE
     Dosage: 200 MG, DAILY
  3. LOSARTAN [Concomitant]
     Active Substance: LOSARTAN
     Dosage: 50 MG DAILY
  4. LERCANIDIPINE [Concomitant]
     Active Substance: LERCANIDIPINE
     Dosage: 10 MG, FOR 3 WEEKS
  5. CITALOPRAM [Suspect]
     Active Substance: CITALOPRAM HYDROBROMIDE
     Dosage: 20 MG FOR 3 WEEKS

REACTIONS (3)
  - Left ventricular hypertrophy [Recovered/Resolved]
  - Hypokalaemia [Recovered/Resolved]
  - Cardiac murmur [Recovered/Resolved]
